FAERS Safety Report 6091286-9 (Version None)
Quarter: 2009Q1

REPORT INFORMATION
  Report Type: 
  Country: None (occurrence: None)
  Receive Date: 20090220
  Receipt Date: 20090220
  Transmission Date: 20090719
  Serious: Yes (Other)
  Sender: FDA-Public Use
  Company Number: None

PATIENT
  Sex: Male
  Weight: 77.1115 kg

DRUGS (9)
  1. METFORMIN HCL [Suspect]
     Indication: BLOOD GLUCOSE
     Dosage: 2 TABLETS BY MOUTH DAILY
     Route: 048
     Dates: start: 20090115
  2. ACTOS [Concomitant]
  3. DIOVAN [Concomitant]
  4. METOPROLOL SUCCINATE [Concomitant]
  5. PLAVIX [Concomitant]
  6. NIASPAN [Concomitant]
  7. ISOSORBIDE MONO [Concomitant]
  8. ASPIRIN [Concomitant]
  9. NITROSTAT [Concomitant]

REACTIONS (2)
  - BLOOD GLUCOSE INCREASED [None]
  - PRODUCT QUALITY ISSUE [None]
